FAERS Safety Report 11705584 (Version 1)
Quarter: 2015Q4

REPORT INFORMATION
  Report Type: Spontaneous
  Country: US (occurrence: US)
  Receive Date: 20151106
  Receipt Date: 20151106
  Transmission Date: 20160304
  Serious: No
  Sender: FDA-Public Use
  Company Number: US-WARNER CHILCOTT, LLC-1043868

PATIENT
  Age: 80 Year
  Sex: Female

DRUGS (8)
  1. MULTIVIT [Concomitant]
     Active Substance: VITAMINS
  2. CALCIUM [Concomitant]
     Active Substance: CALCIUM
  3. ENABLEX [Suspect]
     Active Substance: DARIFENACIN\DARIFENACIN HYDROBROMIDE
     Indication: HYPERTONIC BLADDER
     Route: 048
     Dates: start: 20150108, end: 20150108
  4. VITAMIN D [Concomitant]
     Active Substance: CHOLECALCIFEROL
  5. ENTOCORT EC [Concomitant]
     Active Substance: BUDESONIDE
  6. LIPITOR [Concomitant]
     Active Substance: ATORVASTATIN CALCIUM
  7. ATACAND [Concomitant]
     Active Substance: CANDESARTAN CILEXETIL
  8. LUNESTA [Concomitant]
     Active Substance: ESZOPICLONE

REACTIONS (1)
  - Oedema peripheral [Recovering/Resolving]
